FAERS Safety Report 9516854 (Version 1)
Quarter: 2013Q3

REPORT INFORMATION
  Report Type: Spontaneous
  Country: DE (occurrence: DE)
  Receive Date: 20130911
  Receipt Date: 20130911
  Transmission Date: 20140515
  Serious: Yes (Other)
  Sender: FDA-Public Use
  Company Number: DE-BRISTOL-MYERS SQUIBB COMPANY-19223668

PATIENT
  Sex: Female

DRUGS (2)
  1. ELIQUIS [Suspect]
  2. HEPARIN [Suspect]
     Dosage: RECEIVED AFTER 4 PM THE ONE DAY UNTIL 12 O`CLOCK NOON THE NEXT DAY

REACTIONS (1)
  - Aphasia [Unknown]
